FAERS Safety Report 4772384-6 (Version None)
Quarter: 2005Q3

REPORT INFORMATION
  Report Type: 
  Country: None (occurrence: None)
  Receive Date: 20050919
  Receipt Date: 20050310
  Transmission Date: 20060218
  Serious: No
  Sender: FDA-Public Use
  Company Number: US-BRISTOL-MYERS SQUIBB COMPANY-12896767

PATIENT
  Age: 59 Year
  Sex: Female

DRUGS (5)
  1. KENALOG-40 [Suspect]
     Indication: MACULAR OEDEMA
     Dosage: TWO LOTS- LOT# 4J84418 WITH EXP. DATE 7/31/06 AND LOT# 4G78B WITH EXP.DATE 5/31/06
     Route: 031
     Dates: start: 20050209, end: 20050209
  2. VANCOMYCIN [Concomitant]
     Dates: start: 20050211
  3. FORTAZ [Concomitant]
  4. VIGAMOX [Concomitant]
     Dates: end: 20050216
  5. INSULIN [Concomitant]

REACTIONS (2)
  - EYE INFLAMMATION [None]
  - VISUAL ACUITY REDUCED [None]
